FAERS Safety Report 18417542 (Version 2)
Quarter: 2020Q4

REPORT INFORMATION
  Report Type: Spontaneous
  Country: FR (occurrence: FR)
  Receive Date: 20201023
  Receipt Date: 20201105
  Transmission Date: 20210114
  Serious: Yes (Death, Life-Threatening, Hospitalization, Other)
  Sender: FDA-Public Use
  Company Number: FR-BAUSCH-BL-2020-030345

PATIENT
  Age: 18 Year
  Sex: Female

DRUGS (18)
  1. CLOZAPINE. [Interacting]
     Active Substance: CLOZAPINE
     Indication: PSYCHIATRIC SYMPTOM
     Dosage: 100 MG,TID
     Route: 048
     Dates: start: 201305
  2. DOLIPRANE [Suspect]
     Active Substance: ACETAMINOPHEN
     Dosage: 1000 UNK
     Route: 048
  3. OXYBUTYNIN HYDROCHLORIDE [Interacting]
     Active Substance: OXYBUTYNIN CHLORIDE
     Indication: PRODUCT USED FOR UNKNOWN INDICATION
     Dosage: 5 MG,TID
     Route: 065
  4. NORDAZEPAM [Concomitant]
     Active Substance: NORDAZEPAM
     Indication: PRODUCT USED FOR UNKNOWN INDICATION
     Route: 065
  5. PHLOROGLUCINOL [Interacting]
     Active Substance: PHLOROGLUCINOL
     Indication: PRODUCT USED FOR UNKNOWN INDICATION
     Dosage: UNK, PRN
     Route: 065
  6. VALIUM [Suspect]
     Active Substance: DIAZEPAM
     Dosage: 40 MG
     Route: 048
  7. OXYBUTYNIN HYDROCHLORIDE [Interacting]
     Active Substance: OXYBUTYNIN CHLORIDE
     Dosage: 20 MG
     Route: 048
  8. DOLIPRANE [Suspect]
     Active Substance: ACETAMINOPHEN
     Indication: PRODUCT USED FOR UNKNOWN INDICATION
     Dosage: 200 MG, QD2SDO (0,02)
     Route: 065
  9. VALIUM [Suspect]
     Active Substance: DIAZEPAM
     Indication: PSYCHIATRIC SYMPTOM
     Dosage: 10 MG,TID
     Route: 065
  10. LEVOMEPROMAZINE [Interacting]
     Active Substance: LEVOMEPROMAZINE
     Indication: PSYCHIATRIC SYMPTOM
     Dosage: 200 MG
     Route: 048
  11. HYDROXYZINE [Interacting]
     Active Substance: HYDROXYZINE HYDROCHLORIDE
     Dosage: 25 MG,TID
     Route: 048
  12. DOLIPRANE [Suspect]
     Active Substance: ACETAMINOPHEN
     Dosage: 500 MG,QD
     Route: 065
  13. VALIUM [Suspect]
     Active Substance: DIAZEPAM
     Dosage: 1.1.2 (UNK)
     Route: 065
  14. SPASFON (PHLOROGLUCINOL/TRIMETHYLPHLOROGLUCINOL) [Interacting]
     Active Substance: PHLOROGLUCINOL\1,3,5-TRIMETHOXYBENZENE
     Indication: PSYCHIATRIC SYMPTOM
     Dosage: INTERMITTENTLY
     Route: 065
  15. HYDROXYZINE [Interacting]
     Active Substance: HYDROXYZINE HYDROCHLORIDE
     Indication: PRODUCT USED FOR UNKNOWN INDICATION
     Dosage: 150 UNK
     Route: 048
  16. FORLAX [Suspect]
     Active Substance: POLYETHYLENE GLYCOL 4000
     Dosage: UNK, PRN
     Route: 065
  17. OXYBUTYNIN HYDROCHLORIDE [Interacting]
     Active Substance: OXYBUTYNIN CHLORIDE
     Dosage: 4 DF (1,1,2), QD
     Route: 065
  18. FORLAX [Suspect]
     Active Substance: POLYETHYLENE GLYCOL 4000
     Indication: PSYCHIATRIC SYMPTOM
     Dosage: 10 G
     Route: 048

REACTIONS (9)
  - Intestinal pseudo-obstruction [Fatal]
  - Necrosis ischaemic [Fatal]
  - Intestinal obstruction [Fatal]
  - Constipation [Fatal]
  - Drug interaction [Fatal]
  - Antipsychotic drug level increased [Unknown]
  - Toxicity to various agents [Unknown]
  - Megacolon [Fatal]
  - Haemoperitoneum [Unknown]

NARRATIVE: CASE EVENT DATE: 201308
